FAERS Safety Report 14316036 (Version 1)
Quarter: 2017Q4

REPORT INFORMATION
  Report Type: Spontaneous
  Country: TR (occurrence: TR)
  Receive Date: 20171222
  Receipt Date: 20171222
  Transmission Date: 20180321
  Serious: Yes (Hospitalization)
  Sender: FDA-Public Use
  Company Number: PHHY2017TR182026

PATIENT
  Age: 44 Year
  Sex: Female

DRUGS (2)
  1. METHOTREXATE. [Suspect]
     Active Substance: METHOTREXATE
     Indication: RHEUMATOID ARTHRITIS
     Dosage: 15 MG, QD
     Route: 058
  2. METHYLPREDNISOLONE. [Concomitant]
     Active Substance: METHYLPREDNISOLONE
     Indication: RHEUMATOID ARTHRITIS
     Route: 065

REACTIONS (13)
  - Hypophagia [Unknown]
  - Mucosal inflammation [Recovered/Resolved]
  - Mucosal dryness [Unknown]
  - Scar [Unknown]
  - Malaise [Unknown]
  - Stomatitis [Unknown]
  - Skin exfoliation [Unknown]
  - Pancytopenia [Recovered/Resolved]
  - Ulcer haemorrhage [Unknown]
  - Mastication disorder [Unknown]
  - Dysphagia [Unknown]
  - Toxicity to various agents [Unknown]
  - Cheilitis [Unknown]
